FAERS Safety Report 8230820-7 (Version None)
Quarter: 2012Q1

REPORT INFORMATION
  Report Type: 
  Country: None (occurrence: None)
  Receive Date: 20120323
  Receipt Date: 20120313
  Transmission Date: 20120608
  Serious: Yes (Disabling, Other)
  Sender: FDA-Public Use
  Company Number: US-CELGENEUS-163-21880-11122509

PATIENT
  Sex: Female
  Weight: 44.492 kg

DRUGS (15)
  1. PROCHLORPERAZINE MALEATE [Concomitant]
     Dosage: 10 MILLIGRAM
     Route: 065
  2. PANTOPRAZOLE DELAYED RELEASE [Concomitant]
     Dosage: 20 MILLIGRAM
     Route: 065
  3. VELCADE [Concomitant]
     Dosage: 1.3 MILLIGRAM/SQ. METER
     Route: 058
  4. ACYCLOVIR [Concomitant]
     Dosage: 200 MILLIGRAM
     Route: 065
  5. ASPIR-81 [Concomitant]
     Dosage: 81 MILLIGRAM
     Route: 065
  6. DEXAMETHASONE [Concomitant]
     Indication: MULTIPLE MYELOMA
     Route: 065
  7. ZOMETA [Concomitant]
     Route: 065
  8. COREG [Concomitant]
     Dosage: 6.25 MILLIGRAM
     Route: 065
  9. LOPERAMIDE [Concomitant]
     Dosage: 2 MILLIGRAM
     Route: 065
  10. VELCADE [Concomitant]
     Indication: MULTIPLE MYELOMA
     Route: 058
  11. VICODIN [Concomitant]
     Dosage: 5-500MG
     Route: 065
  12. REVLIMID [Suspect]
     Dosage: 15 MILLIGRAM
     Route: 048
     Dates: start: 20111018, end: 20111215
  13. IRON [Concomitant]
     Dosage: 325 MILLIGRAM
     Route: 065
  14. PROTONIX [Concomitant]
     Dosage: 20 MILLIGRAM
     Route: 065
  15. COUMADIN [Concomitant]
     Dosage: 5 MILLIGRAM
     Route: 065

REACTIONS (2)
  - TEMPORAL ARTERITIS [None]
  - OPTIC ISCHAEMIC NEUROPATHY [None]
